FAERS Safety Report 4980509-2 (Version None)
Quarter: 2006Q2

REPORT INFORMATION
  Report Type: 
  Country: None (occurrence: None)
  Receive Date: 20060424
  Receipt Date: 20060321
  Transmission Date: 20061013
  Serious: Yes (Hospitalization)
  Sender: FDA-Public Use
  Company Number: US-BRISTOL-MYERS SQUIBB COMPANY-13321096

PATIENT
  Age: 55 Year
  Sex: Male

DRUGS (7)
  1. COUMADIN [Suspect]
     Indication: ATRIAL FIBRILLATION
     Dates: start: 20050201, end: 20060213
  2. ASPIRIN [Suspect]
     Indication: ATRIAL FIBRILLATION
     Dates: start: 20050201, end: 20060213
  3. NEXAVAR [Suspect]
     Indication: RENAL CELL CARCINOMA STAGE UNSPECIFIED
     Dosage: 400MG BID STARTED 20-JAN-2006 AND STOPPED 13-FEB-2006 D/T EVENT; 400MG BID RESTARTED 02-MAR-2006
     Route: 048
     Dates: start: 20060120
  4. CARTIA XT [Concomitant]
     Dosage: HELD DUE TO INTERNAL BLEEDING
  5. NEURONTIN [Concomitant]
  6. LEXAPRO [Concomitant]
  7. SIMVASTATIN [Concomitant]

REACTIONS (12)
  - ALOPECIA [None]
  - ASTHENIA [None]
  - BLOOD PRESSURE SYSTOLIC DECREASED [None]
  - DIZZINESS [None]
  - DRY SKIN [None]
  - FAECES DISCOLOURED [None]
  - GASTRITIS EROSIVE [None]
  - HAEMORRHAGE [None]
  - OESOPHAGITIS [None]
  - PAIN IN EXTREMITY [None]
  - PALPITATIONS [None]
  - PLANTAR FASCIITIS [None]
